FAERS Safety Report 13644925 (Version 1)
Quarter: 2017Q2

REPORT INFORMATION
  Report Type: Spontaneous
  Country: US (occurrence: US)
  Receive Date: 20170612
  Receipt Date: 20170612
  Transmission Date: 20170830
  Serious: No
  Sender: FDA-Public Use
  Company Number: US-ROCHE-1386262

PATIENT
  Sex: Male

DRUGS (5)
  1. XELODA [Suspect]
     Active Substance: CAPECITABINE
     Dosage: MORNING DOSE. BID 14 DAYS ON, 7 DAYS OFF.
     Route: 048
     Dates: start: 20140301
  2. ASPIRIN. [Concomitant]
     Active Substance: ASPIRIN
  3. SYNTHROID [Concomitant]
     Active Substance: LEVOTHYROXINE SODIUM
  4. XELODA [Suspect]
     Active Substance: CAPECITABINE
     Indication: RECTAL CANCER
     Dosage: BID 14 DAYS ON THEN . AFTERNOON DOSE.
     Route: 048
     Dates: start: 20140301
  5. PRILOSEC [Concomitant]
     Active Substance: OMEPRAZOLE MAGNESIUM

REACTIONS (2)
  - Onychomadesis [Unknown]
  - Burning sensation [Not Recovered/Not Resolved]
